FAERS Safety Report 14258296 (Version 10)
Quarter: 2019Q1

REPORT INFORMATION
  Report Type: Report from Study
  Country: GB (occurrence: GB)
  Receive Date: 20171207
  Receipt Date: 20190215
  Transmission Date: 20190417
  Serious: Yes (Other)
  Sender: FDA-Public Use
  Company Number: GB-ROCHE-1887412

PATIENT
  Age: 72 Year
  Sex: Male

DRUGS (5)
  1. FRAGMIN [Concomitant]
     Active Substance: DALTEPARIN SODIUM
  2. ESBRIET [Suspect]
     Active Substance: PIRFENIDONE
     Indication: IDIOPATHIC PULMONARY FIBROSIS
     Route: 048
     Dates: start: 20161221
  3. DIGOXIN. [Concomitant]
     Active Substance: DIGOXIN
  4. ESBRIET [Suspect]
     Active Substance: PIRFENIDONE
     Indication: IDIOPATHIC PULMONARY FIBROSIS
     Route: 048
  5. WARFARIN [Concomitant]
     Active Substance: WARFARIN

REACTIONS (24)
  - Head injury [Unknown]
  - Pruritus generalised [Recovered/Resolved]
  - Dizziness [Unknown]
  - Coordination abnormal [Unknown]
  - Loss of consciousness [Unknown]
  - Fatigue [Not Recovered/Not Resolved]
  - Nasopharyngitis [Unknown]
  - Diarrhoea [Unknown]
  - Malaise [Unknown]
  - Dyspnoea exertional [Unknown]
  - Disorientation [Unknown]
  - Viral infection [Unknown]
  - Headache [Unknown]
  - Muscular weakness [Unknown]
  - Amnesia [Unknown]
  - Influenza [Unknown]
  - Somnolence [Not Recovered/Not Resolved]
  - Lower respiratory tract infection [Unknown]
  - Transient ischaemic attack [Unknown]
  - Memory impairment [Unknown]
  - Cough [Unknown]
  - Productive cough [Unknown]
  - Lethargy [Not Recovered/Not Resolved]
  - Decreased appetite [Unknown]

NARRATIVE: CASE EVENT DATE: 201701
